FAERS Safety Report 15231984 (Version 2)
Quarter: 2024Q4

REPORT INFORMATION
  Report Type: Spontaneous
  Country: US (occurrence: US)
  Receive Date: 20180802
  Receipt Date: 20241108
  Transmission Date: 20250114
  Serious: No
  Sender: TAKEDA
  Company Number: US-TAKEDA-2018TUS023817

PATIENT
  Sex: Male
  Weight: 91 kg

DRUGS (1)
  1. ENTYVIO [Suspect]
     Active Substance: VEDOLIZUMAB
     Indication: Crohn^s disease
     Dosage: 300 MILLIGRAM
     Route: 042
     Dates: start: 2017

REACTIONS (6)
  - Fibromyalgia [Not Recovered/Not Resolved]
  - Influenza like illness [Unknown]
  - Rash pruritic [Unknown]
  - Hypersensitivity [Unknown]
  - Headache [Unknown]
  - Influenza [Unknown]
